FAERS Safety Report 9403641 (Version 1)
Quarter: 2013Q3

REPORT INFORMATION
  Report Type: Report from Study
  Country: MX (occurrence: MX)
  Receive Date: 20130717
  Receipt Date: 20130717
  Transmission Date: 20140515
  Serious: Yes (Other)
  Sender: FDA-Public Use
  Company Number: MX-ROCHE-1242923

PATIENT
  Age: 54 Year
  Sex: Female
  Weight: 63.7 kg

DRUGS (5)
  1. HERCEPTIN [Suspect]
     Indication: BREAST CANCER
     Route: 042
     Dates: start: 20120208, end: 2012
  2. HERCEPTIN [Suspect]
     Route: 042
     Dates: start: 2012, end: 20130503
  3. ANASTROZOLE [Concomitant]
     Indication: BREAST CANCER
     Route: 048
     Dates: start: 201301
  4. METFORMIN [Concomitant]
     Indication: DIABETES MELLITUS
     Route: 048
  5. GLIBENCLAMIDE [Concomitant]
     Indication: DIABETES MELLITUS
     Route: 048
     Dates: start: 2002

REACTIONS (10)
  - Upper limb fracture [Recovered/Resolved with Sequelae]
  - Bone pain [Not Recovered/Not Resolved]
  - Pain in extremity [Unknown]
  - Fall [Recovered/Resolved]
  - Anaemia [Unknown]
  - Dizziness [Recovered/Resolved]
  - Uterine cervix ulcer [Unknown]
  - Infection [Unknown]
  - Increased appetite [Not Recovered/Not Resolved]
  - Weight increased [Not Recovered/Not Resolved]
